FAERS Safety Report 12512825 (Version 1)
Quarter: 2016Q2

REPORT INFORMATION
  Report Type: Spontaneous
  Country: US (occurrence: None)
  Receive Date: 20160629
  Receipt Date: 20160629
  Transmission Date: 20160815
  Serious: No
  Sender: FDA-Public Use
  Company Number: None

PATIENT
  Sex: Female

DRUGS (1)
  1. HALDOL [Suspect]
     Active Substance: HALOPERIDOL
     Indication: MAJOR DEPRESSION
     Dosage: 1 MONTH INJECTION
     Dates: start: 20160307

REACTIONS (7)
  - Dry mouth [None]
  - Spinal disorder [None]
  - Rash [None]
  - Headache [None]
  - Feeling hot [None]
  - Sputum discoloured [None]
  - Dyspnoea [None]

NARRATIVE: CASE EVENT DATE: 201604
